FAERS Safety Report 7879222-3 (Version None)
Quarter: 2011Q4

REPORT INFORMATION
  Report Type: 
  Country: None (occurrence: None)
  Receive Date: 20111101
  Receipt Date: 20111028
  Transmission Date: 20120403
  Serious: Yes (Disabling, Other)
  Sender: FDA-Public Use
  Company Number: JP-PFIZER INC-2011265050

PATIENT
  Age: 70 Year
  Sex: Male

DRUGS (2)
  1. ZOSYN [Concomitant]
     Dosage: UNK
  2. LYRICA [Suspect]
     Dosage: UNK
     Route: 048

REACTIONS (1)
  - RENAL FAILURE [None]
